FAERS Safety Report 10067907 (Version 2)
Quarter: 2014Q2

REPORT INFORMATION
  Report Type: Report from Study
  Country: JP (occurrence: JP)
  Receive Date: 20140409
  Receipt Date: 20140612
  Transmission Date: 20141212
  Serious: Yes (Hospitalization)
  Sender: FDA-Public Use
  Company Number: JP-SA-2014SA042411

PATIENT
  Age: 8 Year
  Sex: Female
  Weight: 26.2 kg

DRUGS (4)
  1. THYMOGLOBULINE [Suspect]
     Indication: RENAL CELL CARCINOMA
     Route: 042
     Dates: start: 20130805, end: 20130809
  2. SOL-MELCORT [Suspect]
     Indication: APLASTIC ANAEMIA
     Route: 065
     Dates: start: 20130805, end: 20130903
  3. SOL-MELCORT [Suspect]
     Indication: PROPHYLAXIS
     Route: 065
     Dates: start: 20130805, end: 20130903
  4. NEORAL [Concomitant]
     Indication: PROPHYLAXIS AGAINST TRANSPLANT REJECTION
     Dates: start: 20130805

REACTIONS (1)
  - Periostitis [Recovered/Resolved]
